FAERS Safety Report 8900238 (Version 1)
Quarter: 2012Q4

REPORT INFORMATION
  Report Type: 
  Country: BR (occurrence: BR)
  Receive Date: 20121109
  Receipt Date: 20121109
  Transmission Date: 20130627
  Serious: Yes (Other)
  Sender: FDA-Public Use
  Company Number: BR-BAYER-2012-109473

PATIENT
  Age: 61 Year
  Sex: Male
  Weight: 79 kg

DRUGS (5)
  1. NEXAVAR [Suspect]
     Indication: LIVER, CANCER OF
     Dosage: 400 mg, OM for 1 or 2 weeks
     Route: 048
     Dates: start: 2011
  2. NEXAVAR [Suspect]
     Indication: LIVER, CANCER OF
     Dosage: 400 mg, BID
     Dates: start: 2011
  3. NEXAVAR [Suspect]
     Indication: LIVER, CANCER OF
     Dosage: 400 mg, HS
     Dates: start: 20121025
  4. UNKNOWN DRUG [Concomitant]
     Indication: CENTRAL NERVOUS SYSTEM DISORDER
     Route: 048
  5. LEXOTAN [Concomitant]
     Indication: SLEEP DISORDER
     Dosage: 3 mg, QD
     Route: 048

REACTIONS (14)
  - Skin operation [Recovered/Resolved]
  - Dysphonia [Not Recovered/Not Resolved]
  - Diarrhoea [Recovered/Resolved]
  - Hypertension [Not Recovered/Not Resolved]
  - Skin oedema [Recovered/Resolved]
  - Rash [Recovered/Resolved]
  - Nervousness [Not Recovered/Not Resolved]
  - Malaise [Not Recovered/Not Resolved]
  - Depression [Not Recovered/Not Resolved]
  - Palmar-plantar erythrodysaesthesia syndrome [Recovered/Resolved]
  - Erythema [Recovered/Resolved]
  - Oedema peripheral [Recovered/Resolved]
  - Pain in extremity [Recovered/Resolved]
  - Vocal cord disorder [Not Recovered/Not Resolved]
